FAERS Safety Report 9185968 (Version 1)
Quarter: 2013Q1

REPORT INFORMATION
  Report Type: Spontaneous
  Country: US (occurrence: None)
  Receive Date: 20120628
  Receipt Date: 20120628
  Transmission Date: 20140127
  Serious: Yes (Hospitalization, Disabling)
  Sender: FDA-Public Use
  Company Number: PHHY2010US92328

PATIENT
  Age: 83 Year
  Sex: Female
  Weight: 82 kg

DRUGS (5)
  1. RECLAST (ZOLEDRONATE) SOLUTION FOR INJECTION [Suspect]
     Indication: OSTEOPOROSIS
     Route: 042
     Dates: start: 20100824
  2. HYDROCHLOROTHIAZID (HYDROCHLOROTHIAZIDE)) [Concomitant]
  3. LOTREL (AMLODIPINE, BENAZEPRIL HYDROCHLORIDE) [Concomitant]
  4. METFORMIN (METFORMIN) [Concomitant]
  5. ZANTAC (RANITIDINE HYDROCHLORIDE) [Concomitant]

REACTIONS (2)
  - Renal failure acute [None]
  - Dehydration [None]
